FAERS Safety Report 5749814-6 (Version None)
Quarter: 2008Q2

REPORT INFORMATION
  Report Type: 
  Country: None (occurrence: None)
  Receive Date: 20080527
  Receipt Date: 20080516
  Transmission Date: 20081010
  Serious: Yes (Hospitalization)
  Sender: FDA-Public Use
  Company Number: US-ABBOTT-08P-163-0452524-00

PATIENT
  Sex: Male
  Weight: 118.04 kg

DRUGS (21)
  1. HUMIRA [Suspect]
     Indication: PSORIATIC ARTHROPATHY
     Route: 058
     Dates: start: 20071101, end: 20080409
  2. HUMIRA [Suspect]
     Indication: PSORIASIS
     Dates: start: 20080517
  3. BUSPIRONE HYDROCHLORIDE [Concomitant]
     Indication: DRUG USE FOR UNKNOWN INDICATION
     Dosage: 3 IN 1 D, AS REQUIRED
  4. MONTELUKAST SODIUM [Concomitant]
     Indication: DRUG USE FOR UNKNOWN INDICATION
  5. FUROSEMIDE [Concomitant]
     Indication: DRUG USE FOR UNKNOWN INDICATION
  6. PHENYTOIN [Concomitant]
     Indication: DRUG USE FOR UNKNOWN INDICATION
     Dosage: 2 IN AM, 1 AT NOON, AND 1 AT EVENING
  7. ALLOPURINOL [Concomitant]
     Indication: DRUG USE FOR UNKNOWN INDICATION
  8. LISINOPRIL [Concomitant]
     Indication: DRUG USE FOR UNKNOWN INDICATION
  9. METOLAZONE [Concomitant]
     Indication: DRUG USE FOR UNKNOWN INDICATION
  10. ACETYLSALICYLIC ACID SRT [Concomitant]
     Indication: DRUG USE FOR UNKNOWN INDICATION
  11. ROSUVASTATIN [Concomitant]
     Indication: DRUG USE FOR UNKNOWN INDICATION
  12. LEVOSALBUTAMOL [Concomitant]
     Indication: DRUG USE FOR UNKNOWN INDICATION
     Route: 055
  13. POTASSIUM CHLORIDE [Concomitant]
     Indication: DRUG USE FOR UNKNOWN INDICATION
  14. ANDROGEL [Concomitant]
     Indication: DRUG USE FOR UNKNOWN INDICATION
  15. FENOFIBRATE [Concomitant]
     Indication: DRUG USE FOR UNKNOWN INDICATION
  16. SYNOLAR CREAM [Concomitant]
     Indication: DRUG USE FOR UNKNOWN INDICATION
  17. AMITRIPTYLINE HCL [Concomitant]
     Indication: DRUG USE FOR UNKNOWN INDICATION
     Dosage: EVERY BEDTIME
  18. DILTIAZEM HYDROCHLORIDE [Concomitant]
     Indication: DRUG USE FOR UNKNOWN INDICATION
  19. DIGOXIN [Concomitant]
     Indication: DRUG USE FOR UNKNOWN INDICATION
  20. METFORMIN HCL [Concomitant]
     Indication: DRUG USE FOR UNKNOWN INDICATION
     Dosage: 2 IN 1 D WITH FOOD
  21. WARFARIN SODIUM [Concomitant]
     Indication: DRUG USE FOR UNKNOWN INDICATION

REACTIONS (6)
  - ACCIDENTAL EXPOSURE [None]
  - ARTHRALGIA [None]
  - DIABETES MELLITUS INADEQUATE CONTROL [None]
  - HAEMATEMESIS [None]
  - LOBAR PNEUMONIA [None]
  - RESPIRATORY DISTRESS [None]
